FAERS Safety Report 8782015 (Version 3)
Quarter: 2014Q1

REPORT INFORMATION
  Report Type: Spontaneous
  Country: US (occurrence: US)
  Receive Date: 20120913
  Receipt Date: 20140320
  Transmission Date: 20141002
  Serious: Yes (Other)
  Sender: FDA-Public Use
  Company Number: US-BAYER-2012-094333

PATIENT
  Age: 39 Year
  Sex: Female
  Weight: 74.83 kg

DRUGS (6)
  1. YASMIN [Suspect]
     Indication: PREMENSTRUAL SYNDROME
     Dosage: UNK
     Dates: start: 2010, end: 2011
  2. YASMIN [Suspect]
     Indication: ACNE
  3. OCELLA [Suspect]
     Indication: ACNE
     Dosage: UNK
     Dates: start: 2010, end: 2011
  4. OCELLA [Suspect]
     Indication: PREMENSTRUAL SYNDROME
  5. HYDROCODONE [Concomitant]
     Dosage: 5MG/500 MG
     Dates: start: 20110521
  6. VALACICLOVIR [Concomitant]
     Dosage: 500 MG, UNK
     Dates: start: 20110310

REACTIONS (9)
  - Gallbladder disorder [None]
  - Cholecystitis chronic [None]
  - Injury [None]
  - General physical health deterioration [None]
  - Anxiety [None]
  - Anhedonia [None]
  - Emotional distress [None]
  - Pain [None]
  - Abdominal pain [None]
